FAERS Safety Report 8466540-3 (Version None)
Quarter: 2012Q2

REPORT INFORMATION
  Report Type: 
  Country: None (occurrence: None)
  Receive Date: 20120626
  Receipt Date: 20120613
  Transmission Date: 20120825
  Serious: No
  Sender: FDA-Public Use
  Company Number: US-ASTRAZENECA-2012SE39840

PATIENT
  Age: 53 Year
  Sex: Male
  Weight: 74.8 kg

DRUGS (8)
  1. FLU SHOT [Concomitant]
  2. PROAIR HFA [Concomitant]
  3. ATENOLOL [Suspect]
     Route: 048
  4. PNEUMOVAX 23 [Concomitant]
  5. ATROVENT [Concomitant]
  6. ASPIRIN [Concomitant]
  7. BENAZEPRIL [Concomitant]
  8. ADVAIR DISKUS 100/50 [Concomitant]
     Indication: CHRONIC OBSTRUCTIVE PULMONARY DISEASE

REACTIONS (1)
  - DYSPNOEA EXERTIONAL [None]
